FAERS Safety Report 8581104-9 (Version None)
Quarter: 2012Q2

REPORT INFORMATION
  Report Type: 
  Country: None (occurrence: None)
  Receive Date: 20120423
  Receipt Date: 20100621
  Transmission Date: 20120825
  Serious: Yes (Other)
  Sender: FDA-Public Use
  Company Number: PHHY2010US24526

PATIENT
  Age: 20 Year
  Sex: Male

DRUGS (1)
  1. EXJADE [Suspect]

REACTIONS (6)
  - BLOOD BILIRUBIN INCREASED [None]
  - CHOLELITHIASIS [None]
  - ASPARTATE AMINOTRANSFERASE INCREASED [None]
  - BILIRUBIN CONJUGATED INCREASED [None]
  - HYPERBILIRUBINAEMIA [None]
  - ALANINE AMINOTRANSFERASE INCREASED [None]
